FAERS Safety Report 7513792-X (Version None)
Quarter: 2011Q2

REPORT INFORMATION
  Report Type: 
  Country: None (occurrence: None)
  Receive Date: 20110531
  Receipt Date: 20110524
  Transmission Date: 20111010
  Serious: Yes (Other)
  Sender: FDA-Public Use
  Company Number: GXKR2011DE01814

PATIENT
  Sex: Female
  Weight: 63 kg

DRUGS (2)
  1. MARCUMAR [Concomitant]
     Route: 048
  2. MIRTAZAPINE [Suspect]
     Indication: DEPRESSION
     Dosage: 15 MG, QD
     Route: 048
     Dates: start: 20101028

REACTIONS (3)
  - HYPERKINESIA [None]
  - BALLISMUS [None]
  - AKATHISIA [None]
